FAERS Safety Report 26063243 (Version 2)
Quarter: 2025Q4

REPORT INFORMATION
  Report Type: Report from Study
  Country: US (occurrence: US)
  Receive Date: 20251119
  Receipt Date: 20251217
  Transmission Date: 20260117
  Serious: Yes (Other)
  Sender: ALEXION PHARMACEUTICALS
  Company Number: US-AstraZeneca-CH-00994926A

PATIENT
  Age: 86 Year
  Sex: Female

DRUGS (1)
  1. DAPAGLIFLOZIN [Suspect]
     Active Substance: DAPAGLIFLOZIN
     Route: 065

REACTIONS (8)
  - Pulmonary hypertension [Unknown]
  - Coronary artery disease [Unknown]
  - Chronic myeloid leukaemia [Unknown]
  - Thrombocytosis [Unknown]
  - Cardiotoxicity [Unknown]
  - Atrial fibrillation [Unknown]
  - Chronic respiratory failure [Unknown]
  - Polycythaemia vera [Unknown]
